FAERS Safety Report 8682964 (Version 3)
Quarter: 2015Q2

REPORT INFORMATION
  Report Type: Report from Study
  Country: US (occurrence: US)
  Receive Date: 20120725
  Receipt Date: 20150629
  Transmission Date: 20150821
  Serious: Yes (Death, Hospitalization, Other)
  Sender: FDA-Public Use
  Company Number: US-ROCHE-1089362

PATIENT
  Age: 32 Year
  Sex: Male

DRUGS (13)
  1. ACTIVASE [Suspect]
     Active Substance: ALTEPLASE
     Route: 042
  2. DIGOXIN. [Concomitant]
     Active Substance: DIGOXIN
  3. MORPHINE [Concomitant]
     Active Substance: MORPHINE
     Route: 065
  4. SLOW-K [Concomitant]
     Active Substance: POTASSIUM CHLORIDE
  5. ASPIRIN. [Concomitant]
     Active Substance: ASPIRIN
  6. HEPARIN [Concomitant]
     Active Substance: HEPARIN SODIUM
  7. ACTIVASE [Suspect]
     Active Substance: ALTEPLASE
     Indication: ACUTE MYOCARDIAL INFARCTION
     Route: 042
  8. BACTRIM [Concomitant]
     Active Substance: SULFAMETHOXAZOLE\TRIMETHOPRIM
     Route: 065
  9. CAPTOPRIL. [Concomitant]
     Active Substance: CAPTOPRIL
     Route: 065
  10. ACTIVASE [Suspect]
     Active Substance: ALTEPLASE
     Route: 042
  11. PHENERGAN [Concomitant]
     Active Substance: PROMETHAZINE HYDROCHLORIDE
  12. LASIX [Concomitant]
     Active Substance: FUROSEMIDE
     Route: 065
  13. DOBUTAMINE [Concomitant]
     Active Substance: DOBUTAMINE\DOBUTAMINE HYDROCHLORIDE
     Route: 065

REACTIONS (12)
  - Sinus headache [Unknown]
  - Syncope [Unknown]
  - Pulmonary oedema [Unknown]
  - Hypotension [Unknown]
  - Dyspepsia [Unknown]
  - Chest discomfort [Unknown]
  - Hyperhidrosis [Unknown]
  - Chronic kidney disease [Unknown]
  - Death [Fatal]
  - Loss of consciousness [Unknown]
  - Cardiac failure congestive [Unknown]
  - Exercise tolerance decreased [Unknown]
